FAERS Safety Report 6156663-6 (Version None)
Quarter: 2009Q2

REPORT INFORMATION
  Report Type: 
  Country: None (occurrence: None)
  Receive Date: 20090413
  Receipt Date: 20090330
  Transmission Date: 20091009
  Serious: Yes (Hospitalization)
  Sender: FDA-Public Use
  Company Number: AE-2009-006

PATIENT
  Age: 49 Year
  Sex: Male

DRUGS (11)
  1. METOPROLOL SUCCINATE [Suspect]
  2. FENOFIBRATE [Suspect]
     Dosage: 145MG, QD
  3. SORIATANE [Suspect]
     Indication: PSORIASIS
     Dosage: 25MG, QD
     Dates: start: 20080301, end: 20081120
  4. ADVAIR HFA [Suspect]
     Dosage: RESPIRATORY DRUG
     Route: 055
  5. SINGULAIR [Suspect]
  6. LIPITOR [Suspect]
  7. PLAVIX [Suspect]
     Indication: ANTIPLATELET THERAPY
  8. ASPIRIN [Suspect]
     Indication: ANTIPLATELET THERAPY
     Dosage: 325MG, QD
  9. ASPIRIN [Suspect]
     Indication: ANTIPLATELET THERAPY
     Dosage: 81MG,QD
  10. EZETEMIBE [Concomitant]
  11. ALBUTEROL [Concomitant]

REACTIONS (6)
  - CORONARY ARTERY STENOSIS [None]
  - EPISTAXIS [None]
  - HYPOKINESIA [None]
  - HYPOTENSION [None]
  - MYOCARDIAL INFARCTION [None]
  - WEIGHT DECREASED [None]
